FAERS Safety Report 8481831-8 (Version None)
Quarter: 2012Q3

REPORT INFORMATION
  Report Type: 
  Country: None (occurrence: None)
  Receive Date: 20120702
  Receipt Date: 20120625
  Transmission Date: 20120928
  Serious: No
  Sender: FDA-Public Use
  Company Number: US-PFIZER INC-2012138457

PATIENT

DRUGS (3)
  1. ERYTHROMYCIN [Suspect]
     Dosage: UNK
  2. DARVON COMPOUND [Suspect]
     Dosage: UNK
  3. STREPTOMYCIN SULFATE [Suspect]
     Dosage: UNK

REACTIONS (2)
  - RASH [None]
  - URTICARIA [None]
